FAERS Safety Report 8566561-6 (Version None)
Quarter: 2012Q3

REPORT INFORMATION
  Report Type: 
  Country: None (occurrence: None)
  Receive Date: 20120803
  Receipt Date: 20111115
  Transmission Date: 20120928
  Serious: No
  Sender: FDA-Public Use
  Company Number: US-ABBOTT-11P-163-0874491-00

PATIENT
  Sex: Female
  Weight: 112.59 kg

DRUGS (9)
  1. GLYPIZIDE [Concomitant]
     Indication: DIABETES MELLITUS
  2. AMLODIPINE [Concomitant]
     Indication: HYPERTENSION
  3. SIMVASTATIN [Concomitant]
     Indication: BLOOD CHOLESTEROL INCREASED
  4. GABAPENTIN [Concomitant]
     Indication: NERVE INJURY
  5. NIASPAN [Suspect]
     Indication: BLOOD TRIGLYCERIDES INCREASED
     Dates: start: 20100101, end: 20101201
  6. ATENOLOL [Concomitant]
     Indication: HYPERTENSION
  7. NIASPAN [Suspect]
     Indication: BLOOD CHOLESTEROL INCREASED
     Dosage: 1000 MG
     Dates: start: 20110101, end: 20110601
  8. METFORMIN HYDROCHLORIDE [Concomitant]
     Indication: DIABETES MELLITUS
  9. BENICAR [Concomitant]
     Indication: HYPERTENSION

REACTIONS (2)
  - OEDEMA PERIPHERAL [None]
  - SKIN DISCOLOURATION [None]
